FAERS Safety Report 14826020 (Version 3)
Quarter: 2018Q2

REPORT INFORMATION
  Report Type: Report from Study
  Country: FR (occurrence: FR)
  Receive Date: 20180430
  Receipt Date: 20180510
  Transmission Date: 20180711
  Serious: Yes (Other)
  Sender: FDA-Public Use
  Company Number: FR-TEVA-2018-FR-884725

PATIENT
  Age: 54 Year
  Sex: Male

DRUGS (1)
  1. CELECOXIB. [Suspect]
     Active Substance: CELECOXIB
     Indication: ASPIRIN-EXACERBATED RESPIRATORY DISEASE
     Dosage: 100MG
     Route: 048

REACTIONS (5)
  - Rhinorrhoea [Recovering/Resolving]
  - Paraesthesia oral [Recovering/Resolving]
  - Rhinitis [Recovering/Resolving]
  - Asthma [Recovering/Resolving]
  - Nasal obstruction [Recovering/Resolving]
